FAERS Safety Report 8819986 (Version 2)
Quarter: 2012Q4

REPORT INFORMATION
  Report Type: 
  Country: JP (occurrence: JP)
  Receive Date: 20121001
  Receipt Date: 20121109
  Transmission Date: 20130627
  Serious: Yes (Hospitalization)
  Sender: FDA-Public Use
  Company Number: PHHY2012JP083108

PATIENT
  Age: 83 Year
  Sex: Male

DRUGS (4)
  1. VINCRISTINE [Suspect]
     Indication: LYMPHOMA
  2. PREDNISOLONE [Suspect]
     Indication: LYMPHOMA
  3. PIRARUBICIN [Suspect]
     Indication: LYMPHOMA
  4. CYCLOPHOSPHAMIDE [Suspect]
     Indication: LYMPHOMA

REACTIONS (13)
  - Pneumonia [Recovering/Resolving]
  - Renal failure acute [Recovering/Resolving]
  - Bacterial sepsis [Recovered/Resolved]
  - Blood pressure systolic decreased [Recovering/Resolving]
  - Paresis [Recovering/Resolving]
  - Anuria [Recovering/Resolving]
  - Tachycardia [Recovering/Resolving]
  - Pyrexia [Recovering/Resolving]
  - Dyspnoea [Recovering/Resolving]
  - Abdominal distension [Recovering/Resolving]
  - Atelectasis [Recovering/Resolving]
  - Lymphadenopathy [Recovering/Resolving]
  - Gastrointestinal injury [Recovered/Resolved]
